FAERS Safety Report 15692347 (Version 1)
Quarter: 2018Q4

REPORT INFORMATION
  Report Type: Spontaneous
  Country: GB (occurrence: GB)
  Receive Date: 20181205
  Receipt Date: 20181205
  Transmission Date: 20190205
  Serious: Yes (Other)
  Sender: FDA-Public Use
  Company Number: GB-TEVA-2018-GB-982852

PATIENT
  Age: 44 Year
  Sex: Female
  Weight: 69.85 kg

DRUGS (2)
  1. NITROFURANTOIN. [Suspect]
     Active Substance: NITROFURANTOIN
     Indication: URINARY TRACT INFECTION
     Route: 048
     Dates: start: 20181014, end: 20181014
  2. CERELLE [Concomitant]
     Active Substance: DESOGESTREL
     Route: 065

REACTIONS (8)
  - Allergic reaction to excipient [Unknown]
  - Urticaria [Recovered/Resolved]
  - Dyspnoea [Recovered/Resolved]
  - Somnolence [Recovered/Resolved]
  - Tremor [Recovered/Resolved]
  - Pharyngeal oedema [Recovered/Resolved]
  - Chest pain [Recovered/Resolved]
  - Chills [Recovered/Resolved]

NARRATIVE: CASE EVENT DATE: 20181014
